FAERS Safety Report 8696385 (Version 4)
Quarter: 2014Q3

REPORT INFORMATION
  Report Type: Spontaneous
  Country: US (occurrence: US)
  Receive Date: 20120801
  Receipt Date: 20140829
  Transmission Date: 20150326
  Serious: Yes (Hospitalization, Disabling, Other)
  Sender: FDA-Public Use
  Company Number: US-009507513-1207USA008738

PATIENT
  Sex: Female
  Weight: 121.1 kg

DRUGS (2)
  1. NUVARING [Suspect]
     Active Substance: ETHINYL ESTRADIOL\ETONOGESTREL
     Indication: CONTRACEPTION
     Dosage: UNK
     Route: 067
     Dates: start: 20100714, end: 20100827
  2. PHENTERMINE [Concomitant]
     Active Substance: PHENTERMINE

REACTIONS (10)
  - Diarrhoea [Unknown]
  - Fibrin D dimer increased [Unknown]
  - Drug dose omission [Unknown]
  - Chest pain [Unknown]
  - Troponin [Unknown]
  - Bronchitis [Unknown]
  - International normalised ratio decreased [Unknown]
  - Pyrexia [Unknown]
  - Sinus tachycardia [Recovered/Resolved]
  - Pulmonary embolism [Unknown]

NARRATIVE: CASE EVENT DATE: 20100827
